APPROVED DRUG PRODUCT: METADATE CD
Active Ingredient: METHYLPHENIDATE HYDROCHLORIDE
Strength: 50MG
Dosage Form/Route: CAPSULE, EXTENDED RELEASE;ORAL
Application: N021259 | Product #005 | TE Code: AB2
Applicant: AYTU BIOPHARMA INC
Approved: Feb 19, 2006 | RLD: Yes | RS: No | Type: RX